FAERS Safety Report 25044853 (Version 1)
Quarter: 2025Q1

REPORT INFORMATION
  Report Type: Spontaneous
  Country: IT (occurrence: IT)
  Receive Date: 20250306
  Receipt Date: 20250306
  Transmission Date: 20250408
  Serious: Yes (Hospitalization, Other)
  Sender: BOEHRINGER INGELHEIM
  Company Number: IT-ORGANON-O2501ITA002376

PATIENT
  Age: 76 Year
  Sex: Male

DRUGS (6)
  1. PRAMIPEXOLE [Suspect]
     Active Substance: PRAMIPEXOLE
     Indication: Parkinson^s disease
  2. SINEMET [Suspect]
     Active Substance: CARBIDOPA\LEVODOPA
     Indication: Parkinson^s disease
  3. SINEMET [Suspect]
     Active Substance: CARBIDOPA\LEVODOPA
  4. SINEMET [Suspect]
     Active Substance: CARBIDOPA\LEVODOPA
     Dosage: 1 AND A HALF TABLETS AT 7:30 AM, 1 TABLET AT 10:30 AM, 1 AND A HALF TABLETS AT 2:00 PM, 1 TABLET AT 5:00 PM, 1 TABLET AT 7:45 PM
  5. OPICAPONE [Suspect]
     Active Substance: OPICAPONE
     Indication: Parkinson^s disease
  6. SAFINAMIDE [Suspect]
     Active Substance: SAFINAMIDE
     Indication: Parkinson^s disease

REACTIONS (6)
  - Septic shock [Unknown]
  - Hypothyroidism [Unknown]
  - Wrong technique in product usage process [Unknown]
  - Incorrect dose administered [Unknown]
  - Product use complaint [Unknown]
  - Product physical issue [Unknown]

NARRATIVE: CASE EVENT DATE: 20240101
